FAERS Safety Report 8342096-0 (Version None)
Quarter: 2012Q2

REPORT INFORMATION
  Report Type: 
  Country: None (occurrence: None)
  Receive Date: 20120507
  Receipt Date: 20120427
  Transmission Date: 20120825
  Serious: Yes (Hospitalization, Other)
  Sender: FDA-Public Use
  Company Number: US-TEVA-326813USA

PATIENT
  Age: 13 Month
  Sex: Female
  Weight: 9.22 kg

DRUGS (9)
  1. CYTARABINE [Suspect]
     Indication: ACUTE LYMPHOCYTIC LEUKAEMIA
  2. VINCRISTINE [Suspect]
     Indication: ACUTE LYMPHOCYTIC LEUKAEMIA
     Dosage: .8 MILLIGRAM;
  3. HYDROCORTISONE [Suspect]
     Indication: ACUTE LYMPHOCYTIC LEUKAEMIA
  4. LESTAURTINIB [Suspect]
     Indication: ACUTE LYMPHOCYTIC LEUKAEMIA
     Dosage: 5 MG/KG/DAY DIVIDED BID
     Dates: start: 20111111
  5. METHOTREXATE [Suspect]
     Indication: ACUTE LYMPHOCYTIC LEUKAEMIA
     Route: 037
  6. DEXAMETHASONE [Suspect]
     Indication: ACUTE LYMPHOCYTIC LEUKAEMIA
  7. DAUNORUBICIN HYDROCHLORIDE [Suspect]
     Indication: ACUTE LYMPHOCYTIC LEUKAEMIA
  8. CYCLOPHOSPHAMIDE [Suspect]
     Indication: ACUTE LYMPHOCYTIC LEUKAEMIA
  9. PEG-ASAPARGINASE [Suspect]

REACTIONS (2)
  - ENTEROCOCCAL INFECTION [None]
  - NEUTROPHIL COUNT DECREASED [None]
